FAERS Safety Report 5706222-1 (Version None)
Quarter: 2008Q2

REPORT INFORMATION
  Report Type: 
  Country: None (occurrence: None)
  Receive Date: 20080415
  Receipt Date: 20080410
  Transmission Date: 20081010
  Serious: Yes (Hospitalization)
  Sender: FDA-Public Use
  Company Number: MX-BOEHRINGER INGELHEIM GMBH, GERMANY-2008-BP-05604MX

PATIENT
  Age: 50 Year
  Sex: Female

DRUGS (1)
  1. MICARDIS HCT [Suspect]
     Indication: HYPERTENSION
     Route: 048

REACTIONS (2)
  - HYPERTENSIVE CRISIS [None]
  - INTRACRANIAL ANEURYSM [None]
